FAERS Safety Report 15209677 (Version 1)
Quarter: 2018Q3

REPORT INFORMATION
  Report Type: Report from Study
  Country: DE (occurrence: DE)
  Receive Date: 20180727
  Receipt Date: 20180727
  Transmission Date: 20181010
  Serious: Yes (Hospitalization, Disabling)
  Sender: FDA-Public Use
  Company Number: DE-TEVA-2018-DE-930885

PATIENT
  Age: 73 Year
  Sex: Female
  Weight: 90 kg

DRUGS (18)
  1. CAPECITABINE. [Suspect]
     Active Substance: CAPECITABINE
     Route: 048
     Dates: start: 20121019, end: 20121101
  2. CAPECITABINE. [Suspect]
     Active Substance: CAPECITABINE
     Route: 048
     Dates: start: 20130125, end: 20130125
  3. CAPECITABINE. [Suspect]
     Active Substance: CAPECITABINE
     Route: 048
     Dates: start: 20130125, end: 20130207
  4. CAPECITABINE. [Suspect]
     Active Substance: CAPECITABINE
     Route: 048
     Dates: start: 20120719, end: 20121121
  5. CAPECITABINE. [Suspect]
     Active Substance: CAPECITABINE
     Route: 048
     Dates: start: 20121214, end: 20121227
  6. BEVACIZUMAB. [Suspect]
     Active Substance: BEVACIZUMAB
     Route: 042
     Dates: start: 20130628, end: 20130628
  7. BISOPROLOL [Concomitant]
     Active Substance: BISOPROLOL
     Indication: HYPERTONIA
     Dosage: 2.5 MILLIGRAM DAILY; DAILY
     Route: 048
     Dates: start: 20130517
  8. CAPECITABINE. [Suspect]
     Active Substance: CAPECITABINE
     Route: 048
     Dates: start: 20130104, end: 20130117
  9. CAPECITABINE. [Suspect]
     Active Substance: CAPECITABINE
     Dates: start: 20120810, end: 20120823
  10. ACTRAPID [Concomitant]
     Active Substance: INSULIN HUMAN
     Indication: DIABETES MELLITUS
     Route: 058
  11. CAPECITABINE. [Suspect]
     Active Substance: CAPECITABINE
     Route: 048
     Dates: start: 20121108, end: 20121121
  12. CAPECITABINE. [Suspect]
     Active Substance: CAPECITABINE
     Route: 048
     Dates: start: 20120719, end: 20120801
  13. BEVACIZUMAB. [Suspect]
     Active Substance: BEVACIZUMAB
     Route: 042
     Dates: start: 20130920
  14. PROTAPHANE [Concomitant]
     Active Substance: INSULIN HUMAN
     Indication: DIABETES MELLITUS
     Route: 058
  15. CAPECITABINE. [Suspect]
     Active Substance: CAPECITABINE
     Dates: start: 20120628, end: 20120711
  16. CAPECITABINE. [Suspect]
     Active Substance: CAPECITABINE
     Route: 048
     Dates: start: 20120831, end: 20120913
  17. CAPECITABINE. [Suspect]
     Active Substance: CAPECITABINE
     Route: 048
     Dates: start: 20120921, end: 20121004
  18. BEVACIZUMAB. [Suspect]
     Active Substance: BEVACIZUMAB
     Indication: BREAST CANCER
     Dosage: CYCLE 18
     Route: 042
     Dates: start: 20120628, end: 20120628

REACTIONS (3)
  - Hyperglycaemia [Recovered/Resolved]
  - Sepsis [Recovered/Resolved]
  - Escherichia infection [Recovered/Resolved]

NARRATIVE: CASE EVENT DATE: 20130826
